FAERS Safety Report 6987488-7 (Version None)
Quarter: 2010Q3

REPORT INFORMATION
  Report Type: 
  Country: None (occurrence: None)
  Receive Date: 20100916
  Receipt Date: 20100910
  Transmission Date: 20110219
  Serious: Yes (Death, Hospitalization, Other)
  Sender: FDA-Public Use
  Company Number: PHHY2010US41795

PATIENT
  Sex: Female

DRUGS (4)
  1. EXJADE [Suspect]
     Indication: LYMPHATIC DISORDER
     Dosage: 2000 MG, QD
     Route: 048
  2. SYNTHROID [Concomitant]
     Indication: HYPOTHYROIDISM
  3. MORPHINE / MORPHINE SULPHATE [Concomitant]
     Indication: PAIN
  4. CHEMOTHERAPEUTICS,OTHER [Concomitant]
     Indication: MYELODYSPLASTIC SYNDROME

REACTIONS (7)
  - ABDOMINAL PAIN [None]
  - CLOSTRIDIAL INFECTION [None]
  - DEATH [None]
  - INTERVERTEBRAL DISC PROTRUSION [None]
  - NEPHROLITHIASIS [None]
  - PERICARDIAL EFFUSION [None]
  - RENAL STONE REMOVAL [None]
